FAERS Safety Report 20750117 (Version 2)
Quarter: 2022Q2

REPORT INFORMATION
  Report Type: Spontaneous
  Country: US (occurrence: US)
  Receive Date: 20220426
  Receipt Date: 20220427
  Transmission Date: 20220721
  Serious: No
  Sender: FDA-Public Use
  Company Number: US-PFIZER INC-202200610741

PATIENT
  Age: 64 Year
  Sex: Female
  Weight: 94.35 kg

DRUGS (5)
  1. IBRANCE [Suspect]
     Active Substance: PALBOCICLIB
     Indication: Bone cancer
     Dosage: 100 MG, CYCLIC (ONCE A DAY FOR 21 DAYS AND HAVE ONE WEEK OFF AND THEN START BACK)
  2. IBRANCE [Suspect]
     Active Substance: PALBOCICLIB
     Dosage: 75 MG, CYCLIC (IBRANCE 75MG - 21 DAY SUPPLY)
  3. ANASTROZOLE [Concomitant]
     Active Substance: ANASTROZOLE
     Dosage: 1 MG
  4. ZESTRIL [Concomitant]
     Active Substance: LISINOPRIL
     Indication: Blood pressure measurement
     Dosage: 20 MG
     Dates: start: 20220330
  5. CHOLECALCIFEROL [Concomitant]
     Active Substance: CHOLECALCIFEROL
     Indication: COVID-19
     Dosage: 1000 IU

REACTIONS (4)
  - Product dose omission issue [Unknown]
  - Hypertension [Unknown]
  - Blood viscosity increased [Unknown]
  - Blood viscosity decreased [Unknown]
